FAERS Safety Report 11674852 (Version 1)
Quarter: 2015Q4

REPORT INFORMATION
  Report Type: Spontaneous
  Country: US (occurrence: US)
  Receive Date: 20151027
  Receipt Date: 20151027
  Transmission Date: 20160304
  Serious: No
  Sender: FDA-Public Use
  Company Number: US-ELI_LILLY_AND_COMPANY-US201008005105

PATIENT
  Sex: Female

DRUGS (5)
  1. FORTEO [Suspect]
     Active Substance: TERIPARATIDE
     Indication: OSTEOPOROSIS
     Dosage: 20 UG, DAILY (1/D)
  2. ATENOLOL. [Concomitant]
     Active Substance: ATENOLOL
     Indication: ATRIAL FIBRILLATION
  3. COUMADIN [Concomitant]
     Active Substance: WARFARIN SODIUM
  4. RYTHMOL [Concomitant]
     Active Substance: PROPAFENONE HYDROCHLORIDE
     Indication: ATRIAL FIBRILLATION
  5. IRON [Concomitant]
     Active Substance: IRON
     Indication: ANAEMIA

REACTIONS (7)
  - Fall [Unknown]
  - Asthenia [Unknown]
  - Balance disorder [Unknown]
  - Head injury [Unknown]
  - Feeling abnormal [Unknown]
  - Wound haemorrhage [Unknown]
  - Face injury [Unknown]
